FAERS Safety Report 6342060-7 (Version None)
Quarter: 2009Q3

REPORT INFORMATION
  Report Type: 
  Country: None (occurrence: None)
  Receive Date: 20090903
  Receipt Date: 20090824
  Transmission Date: 20100115
  Serious: Yes (Other)
  Sender: FDA-Public Use
  Company Number: DE-1170729

PATIENT
  Sex: Male

DRUGS (1)
  1. MAXITROL [Suspect]
     Dosage: OU
     Route: 047
     Dates: start: 20090817, end: 20090821

REACTIONS (5)
  - DISEASE RECURRENCE [None]
  - EYE INFECTION [None]
  - EYE PRURITUS [None]
  - INTRAOCULAR PRESSURE INCREASED [None]
  - VISION BLURRED [None]
